FAERS Safety Report 25284160 (Version 1)
Quarter: 2025Q2

REPORT INFORMATION
  Report Type: Spontaneous
  Country: CN (occurrence: CN)
  Receive Date: 20250508
  Receipt Date: 20250508
  Transmission Date: 20250717
  Serious: Yes (Hospitalization)
  Sender: PFIZER
  Company Number: CN-PFIZER INC-PV202500054178

PATIENT
  Age: 26 Year
  Sex: Male
  Weight: 75 kg

DRUGS (2)
  1. CYTARABINE [Suspect]
     Active Substance: CYTARABINE
     Indication: Acute leukaemia
     Dosage: 0.1 G, 2X/DAY
     Route: 041
     Dates: start: 20250420, end: 20250425
  2. SODIUM CHLORIDE [Concomitant]
     Active Substance: SODIUM CHLORIDE
     Indication: Acute leukaemia
     Dosage: 250 ML, 1X/DAY
     Route: 041
     Dates: start: 20250420, end: 20250425

REACTIONS (1)
  - Purpura [Recovered/Resolved]

NARRATIVE: CASE EVENT DATE: 20250425
